FAERS Safety Report 19175991 (Version 2)
Quarter: 2021Q2

REPORT INFORMATION
  Report Type: Spontaneous
  Country: JP (occurrence: JP)
  Receive Date: 20210423
  Receipt Date: 20210527
  Transmission Date: 20210717
  Serious: Yes (Other)
  Sender: FDA-Public Use
  Company Number: JP-FERRINGPH-2020FE04226

PATIENT
  Age: 68 Year
  Sex: Male

DRUGS (2)
  1. ANTIHYPERTENSIVES [Concomitant]
     Active Substance: UNSPECIFIED INGREDIENT
     Indication: HYPERTENSION
     Route: 065
  2. MINIRINMELT [Suspect]
     Active Substance: DESMOPRESSIN ACETATE
     Indication: NOCTURIA
     Dosage: 50 UG, 1 TIME DAILY
     Route: 048
     Dates: start: 2020, end: 2021

REACTIONS (11)
  - Insomnia [Unknown]
  - Oropharyngeal discomfort [Unknown]
  - Poor quality sleep [Unknown]
  - Urinary occult blood positive [Unknown]
  - Treatment noncompliance [Unknown]
  - Somnolence [Unknown]
  - Product dose omission in error [Unknown]
  - Therapy cessation [Unknown]
  - Dyspnoea [Unknown]
  - Palpitations [Unknown]
  - Thirst [Unknown]

NARRATIVE: CASE EVENT DATE: 2020
